FAERS Safety Report 18051883 (Version 4)
Quarter: 2020Q3

REPORT INFORMATION
  Report Type: Spontaneous
  Country: CN (occurrence: CN)
  Receive Date: 20200722
  Receipt Date: 20200904
  Transmission Date: 20201103
  Serious: Yes (Other)
  Sender: FDA-Public Use
  Company Number: CN-BIOGEN-2020BI00877588

PATIENT
  Age: 2 Year
  Sex: Male
  Weight: 9 kg

DRUGS (4)
  1. SPINRAZA [Suspect]
     Active Substance: NUSINERSEN
     Indication: SPINAL MUSCULAR ATROPHY
     Dosage: FIRST LOADING DOSE
     Route: 065
     Dates: start: 20200424
  2. SPINRAZA [Suspect]
     Active Substance: NUSINERSEN
     Dosage: FOURTH LOADING DOSE
     Route: 037
     Dates: start: 20200630
  3. SPINRAZA [Suspect]
     Active Substance: NUSINERSEN
     Dosage: SECOND LOADING DOSE
     Route: 065
     Dates: start: 20200508
  4. SPINRAZA [Suspect]
     Active Substance: NUSINERSEN
     Dosage: THIRD LOADING DOSE
     Route: 037
     Dates: start: 20200521

REACTIONS (2)
  - Sepsis [Not Recovered/Not Resolved]
  - Post procedural oedema [Recovered/Resolved]

NARRATIVE: CASE EVENT DATE: 20200508
